FAERS Safety Report 5072620-5 (Version None)
Quarter: 2006Q3

REPORT INFORMATION
  Report Type: 
  Country: None (occurrence: None)
  Receive Date: 20060807
  Receipt Date: 20060728
  Transmission Date: 20061208
  Serious: Yes (Hospitalization)
  Sender: FDA-Public Use
  Company Number: US-GLAXOSMITHKLINE-A0614001A

PATIENT
  Age: 81 Year
  Sex: Female
  Weight: 69 kg

DRUGS (2)
  1. TOPOTECAN [Suspect]
     Indication: MALIGNANT MELANOMA
     Dosage: 2.5MGM2 CYCLIC
     Route: 042
     Dates: start: 20060516
  2. TEMOZOLOMIDE [Suspect]
     Indication: MALIGNANT MELANOMA
     Dosage: 50MGM2 PER DAY
     Route: 048

REACTIONS (3)
  - CONFUSIONAL STATE [None]
  - HYPONATRAEMIA [None]
  - LETHARGY [None]
